FAERS Safety Report 12922372 (Version 2)
Quarter: 2016Q4

REPORT INFORMATION
  Report Type: Report from Study
  Country: US (occurrence: US)
  Receive Date: 20161108
  Receipt Date: 20161216
  Transmission Date: 20170207
  Serious: Yes (Death, Hospitalization)
  Sender: FDA-Public Use
  Company Number: US-B.I. PHARMACEUTICALS,INC./RIDGEFIELD-2015-BI-48859BP

PATIENT
  Age: 55 Year
  Sex: Female
  Weight: 71.2 kg

DRUGS (1)
  1. OFEV [Suspect]
     Active Substance: NINTEDANIB
     Indication: IDIOPATHIC PULMONARY FIBROSIS
     Route: 048
     Dates: start: 20150618

REACTIONS (11)
  - Urinary tract infection [Unknown]
  - Lip blister [Unknown]
  - Fatigue [Unknown]
  - Pneumonia [Unknown]
  - Cellulitis [Unknown]
  - Asthenia [Unknown]
  - Idiopathic pulmonary fibrosis [Fatal]
  - Oral mucosal blistering [Unknown]
  - Herpes zoster [Unknown]
  - Liver function test increased [Recovered/Resolved with Sequelae]
  - Upper respiratory tract infection [Unknown]

NARRATIVE: CASE EVENT DATE: 20160331
